FAERS Safety Report 11690480 (Version 1)
Quarter: 2015Q4

REPORT INFORMATION
  Report Type: Spontaneous
  Country: CH (occurrence: CH)
  Receive Date: 20151102
  Receipt Date: 20151102
  Transmission Date: 20160304
  Serious: Yes (Hospitalization)
  Sender: FDA-Public Use
  Company Number: CH-BAYER-2015-448381

PATIENT
  Age: 76 Year
  Sex: Male

DRUGS (29)
  1. SOLU-CORTEF [Concomitant]
     Active Substance: HYDROCORTISONE SODIUM SUCCINATE
     Dosage: UNK
     Dates: start: 20150705, end: 20150706
  2. HEPARIN BICHSEL [Concomitant]
     Dosage: 26000 IU, QD
     Route: 041
     Dates: start: 20150705
  3. NORADRENALIN [Concomitant]
     Active Substance: NOREPINEPHRINE\NOREPINEPHRINE BITARTRATE
     Dosage: UNK
     Route: 041
     Dates: start: 20150705, end: 20150718
  4. CONDROSULF [Concomitant]
     Active Substance: CHONDROITIN SULFATE (CHICKEN)
     Dosage: UNK
  5. CIPROXIN [Suspect]
     Active Substance: CIPROFLOXACIN
     Dosage: UNK
     Dates: start: 20150721, end: 20150804
  6. TEMESTA [Concomitant]
     Active Substance: LORAZEPAM
     Dosage: UNK
     Dates: start: 20150723
  7. DIPIPERON [Concomitant]
     Active Substance: PIPAMPERONE
     Dosage: UNK
     Dates: start: 20150723, end: 20150723
  8. ACTRAPID [Concomitant]
     Active Substance: INSULIN HUMAN
     Dosage: UNK
  9. NEOSTIGMIN [Concomitant]
     Active Substance: NEOSTIGMINE
     Dosage: UNK
     Dates: start: 20150707, end: 20150719
  10. MYDOCALM [Concomitant]
     Active Substance: TOLPERISONE
     Dosage: UNK
  11. DIFLUCAN [Suspect]
     Active Substance: FLUCONAZOLE
     Dosage: UNK
     Route: 040
     Dates: start: 20150713, end: 20150720
  12. PARACETAMOL [Concomitant]
     Active Substance: ACETAMINOPHEN
     Dosage: UNK
     Dates: start: 20150704, end: 20150706
  13. CONCOR [Concomitant]
     Active Substance: BISOPROLOL FUMARATE
     Dosage: UNK
     Route: 048
  14. MERONEM [Suspect]
     Active Substance: MEROPENEM
     Dosage: UNK
     Route: 040
     Dates: start: 20150711, end: 20150720
  15. VANCOMYCIN [Suspect]
     Active Substance: VANCOMYCIN
     Dosage: UNK
     Route: 040
     Dates: start: 20150704, end: 20150723
  16. CUBICIN [Suspect]
     Active Substance: DAPTOMYCIN
     Dosage: UNK
     Route: 040
     Dates: start: 20150724, end: 20150727
  17. EBRANTIL [Concomitant]
     Active Substance: URAPIDIL
     Dosage: UNK
     Dates: start: 20150708, end: 20150711
  18. PANTOZOL [Concomitant]
     Active Substance: PANTOPRAZOLE SODIUM
     Dosage: UNK
     Route: 048
     Dates: start: 2015
  19. MIANSERIN [Concomitant]
     Active Substance: MIANSERIN
     Dosage: UNK
     Route: 048
  20. CRESTOR [Concomitant]
     Active Substance: ROSUVASTATIN CALCIUM
     Dosage: UNK
     Route: 048
  21. DOLOPHINE HYDROCHLORIDE [Concomitant]
     Active Substance: METHADONE HYDROCHLORIDE
     Dosage: 20 GTT, UNK
     Route: 048
  22. ADRENALIN [Concomitant]
     Active Substance: EPINEPHRINE
     Dosage: UNK
     Dates: start: 20150714, end: 20150716
  23. PRADIF T [Concomitant]
     Active Substance: TAMSULOSIN HYDROCHLORIDE
     Dosage: UNK
  24. TAZOBAC [Suspect]
     Active Substance: PIPERACILLIN SODIUM\TAZOBACTAM SODIUM
     Dosage: UNK
     Dates: start: 20150704, end: 20150711
  25. NOVALGIN [Concomitant]
     Active Substance: METAMIZOLE SODIUM
     Dosage: UNK
     Dates: start: 20150704, end: 20150706
  26. CORDARON [Concomitant]
     Active Substance: AMIODARONE HYDROCHLORIDE
     Dosage: UNK
     Dates: start: 20150711, end: 20150718
  27. ZESTRIL [Concomitant]
     Active Substance: LISINOPRIL
     Dosage: UNK
     Route: 048
  28. SUFENTANIL [Concomitant]
     Active Substance: SUFENTANIL
     Dosage: UNK
     Dates: start: 20150705, end: 20150804
  29. NALOXON [Concomitant]
     Dosage: UNK
     Dates: start: 20150708, end: 20150721

REACTIONS (4)
  - Rash [Recovered/Resolved]
  - Drug reaction with eosinophilia and systemic symptoms [Recovered/Resolved]
  - Eosinophilia [Recovered/Resolved]
  - Transaminases abnormal [Recovered/Resolved]

NARRATIVE: CASE EVENT DATE: 201507
